FAERS Safety Report 5463689-4 (Version None)
Quarter: 2007Q3

REPORT INFORMATION
  Report Type: 
  Country: None (occurrence: None)
  Receive Date: 20070920
  Receipt Date: 20070913
  Transmission Date: 20080115
  Serious: Yes (Death)
  Sender: FDA-Public Use
  Company Number: CI-BOEHRINGER INGELHEIM PHARMACEUTICALS, INC.-2007-DE-05492GD

PATIENT

DRUGS (8)
  1. NEVIRAPINE [Suspect]
     Indication: HUMAN IMMUNODEFICIENCY VIRUS TRANSMISSION
     Route: 064
  2. NEVIRAPINE [Suspect]
     Indication: PROPHYLAXIS
     Route: 048
  3. ZIDOVUDINE [Suspect]
     Indication: HUMAN IMMUNODEFICIENCY VIRUS TRANSMISSION
     Route: 048
  4. ZIDOVUDINE [Suspect]
     Indication: PROPHYLAXIS
  5. LAMIVUDINE [Suspect]
     Indication: HUMAN IMMUNODEFICIENCY VIRUS TRANSMISSION
     Route: 064
  6. LAMIVUDINE [Suspect]
     Indication: PROPHYLAXIS
  7. ANTIRETROVIRAL AGENT [Suspect]
     Indication: HUMAN IMMUNODEFICIENCY VIRUS TRANSMISSION
     Route: 064
  8. ANTIRETROVIRAL AGENT [Suspect]
     Indication: PROPHYLAXIS

REACTIONS (1)
  - RESPIRATORY DISTRESS [None]
